FAERS Safety Report 11402575 (Version 1)
Quarter: 2015Q3

REPORT INFORMATION
  Report Type: Spontaneous
  Country: US (occurrence: US)
  Receive Date: 20150821
  Receipt Date: 20150821
  Transmission Date: 20151125
  Serious: No
  Sender: FDA-Public Use
  Company Number: US-ROCHE-1362853

PATIENT
  Sex: Male
  Weight: 140.74 kg

DRUGS (3)
  1. SOVALDI [Suspect]
     Active Substance: SOFOSBUVIR
     Indication: HEPATITIS C
     Dosage: 12 WEEK LENGTH OF THERAPY
     Route: 065
     Dates: start: 20140206
  2. PEGASYS [Suspect]
     Active Substance: PEGINTERFERON ALFA-2A
     Indication: HEPATITIS C
     Dosage: 12 WEEK LENGTH OF THERAPY
     Route: 058
     Dates: start: 20140206
  3. RIBAVIRIN. [Suspect]
     Active Substance: RIBAVIRIN
     Indication: HEPATITIS C
     Dosage: 800/600 DIVIDED DOSES. 12 WEEK LENGTH OF THERAPY
     Route: 048
     Dates: start: 20140206

REACTIONS (2)
  - Weight decreased [Unknown]
  - Drug dose omission [Unknown]
